FAERS Safety Report 7706252-4 (Version None)
Quarter: 2011Q3

REPORT INFORMATION
  Report Type: 
  Country: None (occurrence: None)
  Receive Date: 20110824
  Receipt Date: 20110815
  Transmission Date: 20111222
  Serious: Yes (Other)
  Sender: FDA-Public Use
  Company Number: DE-ROCHE-782186

PATIENT
  Sex: Female
  Weight: 106 kg

DRUGS (4)
  1. HERCEPTIN [Suspect]
     Route: 042
     Dates: start: 20110413, end: 20110518
  2. HERCEPTIN [Suspect]
     Route: 042
     Dates: start: 20101229, end: 20110323
  3. HERCEPTIN [Suspect]
     Indication: BREAST CANCER
     Dosage: DOSE: 8 MG/KG AND 6 MG/KG
     Route: 042
     Dates: start: 20100219, end: 20100616
  4. FEMARA [Concomitant]
     Route: 048
     Dates: start: 20100312

REACTIONS (2)
  - BASEDOW'S DISEASE [None]
  - CARDIAC FAILURE [None]
